FAERS Safety Report 4970958-0 (Version None)
Quarter: 2006Q2

REPORT INFORMATION
  Report Type: 
  Country: None (occurrence: None)
  Receive Date: 20060411
  Receipt Date: 20060411
  Transmission Date: 20061013
  Serious: Yes (Death)
  Sender: FDA-Public Use
  Company Number: None

PATIENT
  Age: 90 Year
  Sex: Female

DRUGS (2)
  1. WARFARIN SODIUM [Suspect]
     Indication: ATRIAL FIBRILLATION
     Dosage: DAILY   PO   (DURATION: LESS THAN 2 MONTHS)
     Route: 048
     Dates: start: 20060125, end: 20060304
  2. ASPIRIN [Suspect]
     Dosage: 81MG   DAILY   INJ

REACTIONS (7)
  - FALL [None]
  - FEELING HOT [None]
  - HAEMORRHAGE INTRACRANIAL [None]
  - HYPERTENSION [None]
  - LOSS OF CONSCIOUSNESS [None]
  - PNEUMONIA [None]
  - SUBDURAL HAEMORRHAGE [None]
